FAERS Safety Report 13641639 (Version 2)
Quarter: 2019Q3

REPORT INFORMATION
  Report Type: Spontaneous
  Country: CA (occurrence: CA)
  Receive Date: 20170612
  Receipt Date: 20190704
  Transmission Date: 20191004
  Serious: Yes (Hospitalization, Other)
  Sender: FDA-Public Use
  Company Number: CA-JNJFOC-20170602039

PATIENT
  Age: 6 Decade
  Sex: Female

DRUGS (3)
  1. REMICADE [Suspect]
     Active Substance: INFLIXIMAB
     Route: 042
     Dates: start: 20160302
  2. REMICADE [Suspect]
     Active Substance: INFLIXIMAB
     Route: 042
     Dates: start: 20160317
  3. REMICADE [Suspect]
     Active Substance: INFLIXIMAB
     Indication: RHEUMATOID ARTHRITIS
     Route: 042
     Dates: start: 20160115

REACTIONS (6)
  - Pneumonia cryptococcal [Unknown]
  - Rheumatoid arthritis [Unknown]
  - Microcytic anaemia [Unknown]
  - Contraindication to vaccination [Unknown]
  - Tuberculosis [Unknown]
  - Hepatitis B core antibody positive [Unknown]

NARRATIVE: CASE EVENT DATE: 2016
